FAERS Safety Report 14454171 (Version 1)
Quarter: 2018Q1

REPORT INFORMATION
  Report Type: Spontaneous
  Country: US (occurrence: US)
  Receive Date: 20180129
  Receipt Date: 20180129
  Transmission Date: 20180509
  Serious: No
  Sender: FDA-Public Use
  Company Number: US-LEXICON PHARMACEUTICALS, INC-17-1606-01356

PATIENT
  Age: 68 Year
  Sex: Male

DRUGS (18)
  1. KLOR-CON [Concomitant]
     Active Substance: POTASSIUM CHLORIDE
  2. ROPINIROLE. [Concomitant]
     Active Substance: ROPINIROLE
  3. PREDNISOLONE. [Concomitant]
     Active Substance: PREDNISOLONE
  4. VOLTAREN [Concomitant]
     Active Substance: DICLOFENAC SODIUM
  5. PAROXETINE. [Concomitant]
     Active Substance: PAROXETINE
  6. NIACIN. [Concomitant]
     Active Substance: NIACIN
  7. SERTRALINE [Concomitant]
     Active Substance: SERTRALINE HYDROCHLORIDE
  8. INDOMETHACIN. [Concomitant]
     Active Substance: INDOMETHACIN
  9. MAGNESIUM [Concomitant]
     Active Substance: MAGNESIUM
  10. OPIUM. [Concomitant]
     Active Substance: OPIUM
  11. SANDOSTATIN [Concomitant]
     Active Substance: OCTREOTIDE ACETATE
  12. ASPIR-LOW [Concomitant]
     Active Substance: ASPIRIN
  13. OMEPRAZOLE. [Concomitant]
     Active Substance: OMEPRAZOLE
  14. TELOTRISTAT ETHYL [Suspect]
     Active Substance: TELOTRISTAT ETHYL
     Indication: CARCINOID SYNDROME
     Route: 048
     Dates: start: 20171005
  15. DICYCLOMINE [Concomitant]
     Active Substance: DICYCLOMINE HYDROCHLORIDE
  16. ALLOPURINOL. [Concomitant]
     Active Substance: ALLOPURINOL
  17. AMLODIPINE [Concomitant]
     Active Substance: AMLODIPINE BESYLATE
  18. VITAMIN B12 [Concomitant]
     Active Substance: CYANOCOBALAMIN

REACTIONS (2)
  - Dizziness postural [Not Recovered/Not Resolved]
  - Gastrointestinal motility disorder [Unknown]

NARRATIVE: CASE EVENT DATE: 201712
